FAERS Safety Report 5041087-5 (Version None)
Quarter: 2006Q3

REPORT INFORMATION
  Report Type: 
  Country: None (occurrence: None)
  Receive Date: 20060703
  Receipt Date: 20060113
  Transmission Date: 20061208
  Serious: Yes (Other)
  Sender: FDA-Public Use
  Company Number: US-ROCHE-432356

PATIENT
  Age: 14 Year
  Sex: Male
  Weight: 79.4 kg

DRUGS (4)
  1. ACCUTANE [Suspect]
     Indication: ACNE
     Route: 048
     Dates: start: 19960106, end: 19970625
  2. TYLENOL (CAPLET) [Concomitant]
     Indication: HEADACHE
  3. GENERIC DRUGS [Concomitant]
     Dosage: UNSPECIFIED OVER-THE-COUNTER MEDICATION TAKEN FOR COLDS AND/OR FLU.
  4. ANTIBIOTIC NOS [Concomitant]

REACTIONS (44)
  - ABDOMINAL PAIN [None]
  - ABSCESS [None]
  - ACROCHORDON [None]
  - ANAEMIA [None]
  - ARTHRALGIA [None]
  - ARTHROPOD BITE [None]
  - BLISTER [None]
  - CELLULITIS [None]
  - COLITIS [None]
  - COLITIS ULCERATIVE [None]
  - COXSACKIE VIRAL INFECTION [None]
  - CROHN'S DISEASE [None]
  - DEPRESSION [None]
  - DIARRHOEA [None]
  - DIZZINESS [None]
  - DRY SKIN [None]
  - DYSGEUSIA [None]
  - EPSTEIN-BARR VIRUS INFECTION [None]
  - EYE DISORDER [None]
  - GASTROOESOPHAGEAL REFLUX DISEASE [None]
  - GROIN PAIN [None]
  - HYPOSMIA [None]
  - INFLAMMATORY BOWEL DISEASE [None]
  - INTESTINAL HAEMORRHAGE [None]
  - INTESTINAL OBSTRUCTION [None]
  - IRRITABLE BOWEL SYNDROME [None]
  - LIP DRY [None]
  - MELANOCYTIC NAEVUS [None]
  - MUSCLE INJURY [None]
  - NAUSEA [None]
  - NECK INJURY [None]
  - NECK PAIN [None]
  - PHARYNGITIS [None]
  - PHARYNGOLARYNGEAL PAIN [None]
  - POLLAKIURIA [None]
  - POLYP [None]
  - PROSTATITIS [None]
  - ROAD TRAFFIC ACCIDENT [None]
  - SCAR [None]
  - SKIN LESION [None]
  - SKIN PAPILLOMA [None]
  - TESTICULAR PAIN [None]
  - VOMITING [None]
  - XEROSIS [None]
